FAERS Safety Report 21942402 (Version 1)
Quarter: 2023Q1

REPORT INFORMATION
  Report Type: Spontaneous
  Country: DE (occurrence: DE)
  Receive Date: 20230202
  Receipt Date: 20230202
  Transmission Date: 20230417
  Serious: No
  Sender: FDA-Public Use
  Company Number: DE-EXELIXIS-CABO-22057762

PATIENT
  Age: 67 Year
  Sex: Female
  Weight: 52 kg

DRUGS (1)
  1. CABOMETYX [Suspect]
     Active Substance: CABOZANTINIB S-MALATE
     Indication: Renal cancer
     Dosage: UNK
     Dates: start: 202110, end: 202208

REACTIONS (11)
  - Skin discolouration [Unknown]
  - Blister [Unknown]
  - Depression [Unknown]
  - Hair colour changes [Unknown]
  - Dysgeusia [Unknown]
  - Dizziness [Unknown]
  - Diarrhoea [Unknown]
  - Weight decreased [Unknown]
  - Asthenia [Unknown]
  - Blood pressure increased [Unknown]
  - Metastases to lung [Unknown]

NARRATIVE: CASE EVENT DATE: 20220301
